FAERS Safety Report 21031916 (Version 1)
Quarter: 2022Q3

REPORT INFORMATION
  Report Type: Report from Study
  Country: DE (occurrence: DE)
  Receive Date: 20220701
  Receipt Date: 20220701
  Transmission Date: 20221027
  Serious: Yes (Hospitalization)
  Sender: FDA-Public Use
  Company Number: DE-ABBVIE-22K-062-4330268-00

PATIENT
  Age: 50 Year
  Sex: Female
  Weight: 85 kg

DRUGS (4)
  1. RINVOQ [Suspect]
     Active Substance: UPADACITINIB
     Indication: Neurodermatitis
     Route: 048
     Dates: start: 20220128
  2. LEVOTHYROXINE SODIUM\POTASSIUM IODIDE [Concomitant]
     Active Substance: LEVOTHYROXINE SODIUM\POTASSIUM IODIDE
     Indication: Hypothyroidism
  3. ESCITALOPRAM [Concomitant]
     Active Substance: ESCITALOPRAM OXALATE
     Indication: Depression
  4. LORATADINE [Concomitant]
     Active Substance: LORATADINE
     Indication: Pruritus

REACTIONS (2)
  - Neurodermatitis [Recovering/Resolving]
  - Herpes simplex [Recovered/Resolved]

NARRATIVE: CASE EVENT DATE: 20220131
